FAERS Safety Report 9921915 (Version 1)
Quarter: 2014Q1

REPORT INFORMATION
  Report Type: Spontaneous
  Country: US (occurrence: None)
  Receive Date: 20140221
  Receipt Date: 20140221
  Transmission Date: 20141002
  Serious: Yes (Other)
  Sender: FDA-Public Use
  Company Number: None

PATIENT
  Age: 56 Year
  Sex: Female
  Weight: 72.58 kg

DRUGS (1)
  1. LIOTHYRONINE [Suspect]
     Indication: HYPOTHYROIDISM
     Route: 048
     Dates: start: 20140210, end: 20140217

REACTIONS (12)
  - Palpitations [None]
  - Alopecia [None]
  - Weight increased [None]
  - Headache [None]
  - Migraine [None]
  - Dry skin [None]
  - Myalgia [None]
  - Arthralgia [None]
  - Fatigue [None]
  - Malaise [None]
  - Product substitution issue [None]
  - Product quality issue [None]
